FAERS Safety Report 7205547-0 (Version None)
Quarter: 2010Q4

REPORT INFORMATION
  Report Type: 
  Country: None (occurrence: None)
  Receive Date: 20101231
  Receipt Date: 20101222
  Transmission Date: 20110411
  Serious: Yes (Other)
  Sender: FDA-Public Use
  Company Number: PHHY2010CA76903

PATIENT
  Sex: Male
  Weight: 79.5 kg

DRUGS (8)
  1. EXTAVIA [Suspect]
     Indication: RELAPSING-REMITTING MULTIPLE SCLEROSIS
     Dosage: 8 MIU, QOD
     Route: 058
     Dates: start: 20101104
  2. ANDROGEL [Concomitant]
  3. MACA [Concomitant]
  4. VITAMIN B-12 [Concomitant]
  5. MULTI-VITAMINS [Concomitant]
  6. POTASSIUM [Concomitant]
  7. REACTINE/CAN/ [Concomitant]
     Indication: DERMATITIS
  8. CRESTOR [Concomitant]

REACTIONS (5)
  - CHILLS [None]
  - DEPRESSION [None]
  - OTORRHOEA [None]
  - PRURITUS [None]
  - RASH PRURITIC [None]
